FAERS Safety Report 12883881 (Version 2)
Quarter: 2018Q3

REPORT INFORMATION
  Report Type: Spontaneous
  Country: US (occurrence: US)
  Receive Date: 20161025
  Receipt Date: 20180921
  Transmission Date: 20181010
  Serious: Yes (Hospitalization)
  Sender: FDA-Public Use
  Company Number: US-BIOGEN-2015BI082239

PATIENT
  Age: 49 Year
  Sex: Female

DRUGS (1)
  1. TYSABRI [Suspect]
     Active Substance: NATALIZUMAB
     Indication: MULTIPLE SCLEROSIS
     Dosage: INFIUSED OVER 1 HOUR
     Route: 042
     Dates: start: 20121108

REACTIONS (1)
  - Renal cell carcinoma [Recovered/Resolved]

NARRATIVE: CASE EVENT DATE: 201504
